FAERS Safety Report 19262838 (Version 6)
Quarter: 2021Q4

REPORT INFORMATION
  Report Type: Report from Study
  Country: US (occurrence: US)
  Receive Date: 20210517
  Receipt Date: 20211006
  Transmission Date: 20220303
  Serious: Yes (Other)
  Sender: FDA-Public Use
  Company Number: US-NOVARTISPH-NVSC2021US103469

PATIENT
  Age: 44 Year
  Sex: Female

DRUGS (1)
  1. KESIMPTA [Suspect]
     Active Substance: OFATUMUMAB
     Indication: Multiple sclerosis
     Dosage: 20 MG, QMO(SOLUTION BENEATH THE SKIN)
     Route: 058
     Dates: start: 20210420, end: 20210625

REACTIONS (6)
  - Seizure [Unknown]
  - Pain in extremity [Unknown]
  - Back pain [Unknown]
  - Infection [Unknown]
  - Muscle spasms [Unknown]
  - Blister [Unknown]

NARRATIVE: CASE EVENT DATE: 20210420
